FAERS Safety Report 19220982 (Version 13)
Quarter: 2025Q3

REPORT INFORMATION
  Report Type: Report from Study
  Country: CA (occurrence: CA)
  Receive Date: 20210505
  Receipt Date: 20250713
  Transmission Date: 20251021
  Serious: Yes (Other)
  Sender: TAKEDA
  Company Number: CA-TAKEDA-2021TUS027786

PATIENT
  Age: 47 Year
  Sex: Female

DRUGS (11)
  1. VEDOLIZUMAB [Suspect]
     Active Substance: VEDOLIZUMAB
     Indication: Crohn^s disease
  2. VEDOLIZUMAB [Suspect]
     Active Substance: VEDOLIZUMAB
  3. VEDOLIZUMAB [Suspect]
     Active Substance: VEDOLIZUMAB
  4. VEDOLIZUMAB [Suspect]
     Active Substance: VEDOLIZUMAB
     Dosage: 300 MILLIGRAM, Q4WEEKS
     Dates: start: 20221018
  5. VEDOLIZUMAB [Suspect]
     Active Substance: VEDOLIZUMAB
     Dosage: 300 MILLIGRAM, Q4WEEKS
  6. VEDOLIZUMAB [Suspect]
     Active Substance: VEDOLIZUMAB
  7. VEDOLIZUMAB [Suspect]
     Active Substance: VEDOLIZUMAB
  8. VEDOLIZUMAB [Suspect]
     Active Substance: VEDOLIZUMAB
  9. VEDOLIZUMAB [Suspect]
     Active Substance: VEDOLIZUMAB
  10. PANTOPRAZOLE MAGNESIUM [Suspect]
     Active Substance: PANTOPRAZOLE MAGNESIUM
     Indication: Product used for unknown indication
  11. IDACIO [Suspect]
     Active Substance: ADALIMUMAB-AACF
     Indication: Ankylosing spondylitis

REACTIONS (14)
  - Crohn^s disease [Unknown]
  - Rectal haemorrhage [Unknown]
  - Ankylosing spondylitis [Unknown]
  - Off label use [Unknown]
  - Spondyloarthropathy [Unknown]
  - Diarrhoea [Unknown]
  - Malaise [Unknown]
  - Menstrual disorder [Recovering/Resolving]
  - Anaemia [Recovering/Resolving]
  - Abdominal pain [Unknown]
  - Injection site reaction [Unknown]
  - Constipation [Not Recovered/Not Resolved]
  - Sinusitis [Unknown]
  - Nausea [Unknown]

NARRATIVE: CASE EVENT DATE: 20221018
